FAERS Safety Report 12427757 (Version 1)
Quarter: 2016Q2

REPORT INFORMATION
  Report Type: Spontaneous
  Country: US (occurrence: None)
  Receive Date: 20160601
  Receipt Date: 20160601
  Transmission Date: 20160815
  Serious: Yes (Disabling)
  Sender: FDA-Public Use
  Company Number: None

PATIENT
  Age: 66 Year
  Sex: Female
  Weight: 65.32 kg

DRUGS (2)
  1. VITAMIN [Concomitant]
     Active Substance: VITAMINS
  2. LEVOFLOXACIN. [Suspect]
     Active Substance: LEVOFLOXACIN
     Indication: PNEUMONIA BACTERIAL
     Dates: start: 20131009, end: 20131010

REACTIONS (4)
  - Joint injury [None]
  - Tendonitis [None]
  - Foot fracture [None]
  - Tendon injury [None]
